FAERS Safety Report 17839462 (Version 1)
Quarter: 2020Q2

REPORT INFORMATION
  Report Type: Spontaneous
  Country: US (occurrence: US)
  Receive Date: 20200529
  Receipt Date: 20200529
  Transmission Date: 20200714
  Serious: No
  Sender: FDA-Public Use
  Company Number: US-BAYER-2020-099369

PATIENT
  Sex: Female

DRUGS (1)
  1. MIRALAX [Suspect]
     Active Substance: POLYETHYLENE GLYCOL 3350
     Indication: GASTROINTESTINAL DISORDER
     Dosage: UNK
     Route: 048
     Dates: start: 20200526, end: 20200527

REACTIONS (6)
  - Stomatitis [Unknown]
  - Rash pruritic [Unknown]
  - Mouth swelling [None]
  - Oral discomfort [None]
  - Rash [Unknown]
  - Rash papular [None]

NARRATIVE: CASE EVENT DATE: 20200526
